FAERS Safety Report 5530061-8 (Version None)
Quarter: 2007Q4

REPORT INFORMATION
  Report Type: 
  Country: None (occurrence: None)
  Receive Date: 20071119
  Receipt Date: 20071009
  Transmission Date: 20080405
  Serious: No
  Sender: FDA-Public Use
  Company Number: TPA2007A02072

PATIENT
  Age: 66 Year
  Sex: Female
  Weight: 58.9676 kg

DRUGS (6)
  1. ROZEREM [Suspect]
     Indication: INSOMNIA
     Dosage: 8 MG, HS, PER ORAL
     Route: 048
     Dates: start: 20071006, end: 20071008
  2. LISINOPRIL/HCTZ (HYDROCHLOROTHIAZIDE, LISINOPRIL) [Concomitant]
  3. ZANTAC 150 [Concomitant]
  4. METFORMIN (METFORMIN) [Concomitant]
  5. JANUVIA (DRUG USED IN DIABETES) [Concomitant]
  6. AMBIEN [Concomitant]

REACTIONS (4)
  - ABNORMAL DREAMS [None]
  - HEADACHE [None]
  - INITIAL INSOMNIA [None]
  - MIDDLE INSOMNIA [None]
